FAERS Safety Report 15117317 (Version 1)
Quarter: 2018Q3

REPORT INFORMATION
  Report Type: Spontaneous
  Country: US (occurrence: US)
  Receive Date: 20180706
  Receipt Date: 20180706
  Transmission Date: 20181010
  Serious: Yes (Other)
  Sender: FDA-Public Use
  Company Number: US-TEVA-2018-US-919929

PATIENT
  Sex: Female

DRUGS (3)
  1. PENICILLIN V [Suspect]
     Active Substance: PENICILLIN V
     Route: 065
  2. MEPERIDINE HYDROCHLORIDE. [Suspect]
     Active Substance: MEPERIDINE HYDROCHLORIDE
     Route: 065
  3. PHENOBARBITAL. [Suspect]
     Active Substance: PHENOBARBITAL
     Route: 065

REACTIONS (3)
  - Urticaria [Unknown]
  - Anaphylactic reaction [Unknown]
  - Pruritus [Unknown]
